FAERS Safety Report 24584926 (Version 1)
Quarter: 2024Q4

REPORT INFORMATION
  Report Type: Spontaneous
  Country: CA (occurrence: CA)
  Receive Date: 20241106
  Receipt Date: 20241106
  Transmission Date: 20250115
  Serious: Yes (Death)
  Sender: EISAI
  Company Number: CA-Eisai-EC-2024-178161

PATIENT
  Age: 75 Year
  Sex: Female

DRUGS (10)
  1. ARICEPT [Suspect]
     Active Substance: DONEPEZIL HYDROCHLORIDE
     Indication: Frontotemporal dementia
     Dosage: DOSE AND FREQUENCY UNKNOWN.
     Route: 048
  2. ARICEPT [Suspect]
     Active Substance: DONEPEZIL HYDROCHLORIDE
     Indication: Corticobasal degeneration
  3. GALANTAMINE [Suspect]
     Active Substance: GALANTAMINE
     Indication: Frontotemporal dementia
     Dosage: DOSE AND FREQUENCY UNKNOWN.
     Route: 065
  4. GALANTAMINE [Suspect]
     Active Substance: GALANTAMINE
     Indication: Corticobasal degeneration
  5. LEVODOPA [Suspect]
     Active Substance: LEVODOPA
     Indication: Frontotemporal dementia
     Dosage: DOSE AND FREQUENCY UNKNOWN.
     Route: 065
  6. LEVODOPA [Suspect]
     Active Substance: LEVODOPA
     Indication: Corticobasal degeneration
  7. MEMANTINE [Suspect]
     Active Substance: MEMANTINE
     Indication: Frontotemporal dementia
     Dosage: DOSE AND FREQUENCY UNKNOWN.
     Route: 065
  8. MEMANTINE [Suspect]
     Active Substance: MEMANTINE
     Indication: Corticobasal degeneration
  9. RIVASTIGMINE [Suspect]
     Active Substance: RIVASTIGMINE
     Indication: Corticobasal degeneration
     Dosage: DOSE AND FREQUENCY UNKNOWN.
     Route: 065
  10. RIVASTIGMINE [Suspect]
     Active Substance: RIVASTIGMINE
     Indication: Frontotemporal dementia

REACTIONS (2)
  - Drug ineffective for unapproved indication [Fatal]
  - Off label use [Fatal]
